FAERS Safety Report 10568557 (Version 1)
Quarter: 2014Q4

REPORT INFORMATION
  Report Type: Spontaneous
  Country: US (occurrence: US)
  Receive Date: 20141106
  Receipt Date: 20141106
  Transmission Date: 20150529
  Serious: Yes (Hospitalization, Other)
  Sender: FDA-Public Use
  Company Number: US-GLENMARK GENERICS INC.-2014GMK011827

PATIENT
  Age: 73 Year
  Sex: Female

DRUGS (9)
  1. TOPROL XL [Concomitant]
     Active Substance: METOPROLOL SUCCINATE
     Indication: PRODUCT USED FOR UNKNOWN INDICATION
     Dosage: UNK
  2. CRESTOR [Concomitant]
     Active Substance: ROSUVASTATIN CALCIUM
     Indication: BLOOD CHOLESTEROL
     Dosage: UNK
  3. ZOLAX                              /00595201/ [Concomitant]
     Indication: BIPOLAR DISORDER
     Dosage: UNK
  4. HYZAAR [Concomitant]
     Active Substance: HYDROCHLOROTHIAZIDE\LOSARTAN POTASSIUM
     Indication: HYPERTENSION
     Dosage: UNK
  5. DUMEX [Concomitant]
     Indication: DIABETES MELLITUS
     Dosage: UNK
  6. METFORMIN [Concomitant]
     Active Substance: METFORMIN HYDROCHLORIDE
     Indication: PRODUCT USED FOR UNKNOWN INDICATION
     Dosage: 1 DF, BID
  7. TRAZODONE [Concomitant]
     Active Substance: TRAZODONE HYDROCHLORIDE
     Indication: PRODUCT USED FOR UNKNOWN INDICATION
     Dosage: UNK
  8. MUPIROCIN OINTMENT [Suspect]
     Active Substance: MUPIROCIN
     Indication: RHINITIS
     Dosage: UNK
     Dates: start: 20141022, end: 20141026
  9. ASPIRIN. [Concomitant]
     Active Substance: ASPIRIN
     Indication: PRODUCT USED FOR UNKNOWN INDICATION
     Dosage: 1 DF, QD

REACTIONS (7)
  - Fall [Unknown]
  - Cough [Unknown]
  - Rib fracture [Unknown]
  - Musculoskeletal pain [Unknown]
  - Haemoptysis [Unknown]
  - Product use issue [Unknown]
  - Joint dislocation [Unknown]

NARRATIVE: CASE EVENT DATE: 20141024
